FAERS Safety Report 4307137-6 (Version None)
Quarter: 2004Q1

REPORT INFORMATION
  Report Type: 
  Country: None (occurrence: None)
  Receive Date: 20040225
  Receipt Date: 20040209
  Transmission Date: 20041129
  Serious: Yes (Hospitalization)
  Sender: FDA-Public Use
  Company Number: USA031254270

PATIENT
  Age: 82 Year
  Sex: Female
  Weight: 66 kg

DRUGS (11)
  1. EVISTA [Suspect]
     Indication: OSTEOPOROSIS
     Dosage: 60 MG/DAY
     Dates: start: 19990101
  2. TICLID [Concomitant]
  3. PEPCID [Concomitant]
  4. ZOCOR [Concomitant]
  5. SYNTHROID [Concomitant]
  6. MAXZIDE [Concomitant]
  7. TENORMIN [Concomitant]
  8. TYLENOL [Concomitant]
  9. ACTONEL [Concomitant]
  10. VICODIN [Concomitant]
  11. IMDUR [Concomitant]

REACTIONS (2)
  - OSTEOPOROTIC FRACTURE [None]
  - SPINAL COMPRESSION FRACTURE [None]
